FAERS Safety Report 8413576-4 (Version None)
Quarter: 2012Q2

REPORT INFORMATION
  Report Type: 
  Country: None (occurrence: None)
  Receive Date: 20120605
  Receipt Date: 20120525
  Transmission Date: 20120825
  Serious: Yes (Life-Threatening, Other)
  Sender: FDA-Public Use
  Company Number: IT-ELI_LILLY_AND_COMPANY-IT201205010052

PATIENT
  Age: 90 Year
  Sex: Male

DRUGS (3)
  1. SELEPARINA [Concomitant]
  2. FORTEO [Suspect]
     Dosage: UNK
     Dates: start: 20110503, end: 20120303
  3. LIMPIDEX [Concomitant]

REACTIONS (2)
  - CARDIAC ARREST [None]
  - INTESTINAL OBSTRUCTION [None]
